FAERS Safety Report 8288223-5 (Version None)
Quarter: 2012Q2

REPORT INFORMATION
  Report Type: 
  Country: None (occurrence: None)
  Receive Date: 20120416
  Receipt Date: 20120405
  Transmission Date: 20120825
  Serious: Yes (Hospitalization)
  Sender: FDA-Public Use
  Company Number: BE-VERTEX PHARMACEUTICALS INC.-000000000000000494

PATIENT
  Sex: Female

DRUGS (3)
  1. INCIVO (TELAPREVIR) [Suspect]
     Indication: HEPATITIS C
     Dosage: DOSAGE FORM: TABLET
     Dates: start: 20120119, end: 20120225
  2. RIBAVIRIN [Suspect]
     Indication: HEPATITIS C
  3. PEGINTERFERON ALFA-2A [Concomitant]
     Indication: HEPATITIS C

REACTIONS (3)
  - ANAEMIA [None]
  - ASTHENIA [None]
  - SYNCOPE [None]
